FAERS Safety Report 12388026 (Version 1)
Quarter: 2016Q2

REPORT INFORMATION
  Report Type: Spontaneous
  Country: US (occurrence: None)
  Receive Date: 20160519
  Receipt Date: 20160519
  Transmission Date: 20160815
  Serious: No
  Sender: FDA-Public Use
  Company Number: None

PATIENT
  Age: 54 Year
  Sex: Male
  Weight: 95.26 kg

DRUGS (2)
  1. ELIQUIS [Suspect]
     Active Substance: APIXABAN
     Indication: HIP SURGERY
     Dosage: 2 PILLS TWICE DAILY MOUTH
     Route: 048
     Dates: start: 20150810
  2. ELIQUIS [Suspect]
     Active Substance: APIXABAN
     Indication: PULMONARY EMBOLISM
     Dosage: 2 PILLS TWICE DAILY MOUTH
     Route: 048
     Dates: start: 20150810

REACTIONS (6)
  - Abdominal pain upper [None]
  - Urinary bladder rupture [None]
  - Ocular hyperaemia [None]
  - Muscle spasms [None]
  - Spinal fracture [None]
  - Dysphagia [None]

NARRATIVE: CASE EVENT DATE: 20150826
